FAERS Safety Report 4761837-2 (Version None)
Quarter: 2005Q3

REPORT INFORMATION
  Report Type: 
  Country: None (occurrence: None)
  Receive Date: 20050906
  Receipt Date: 20050624
  Transmission Date: 20060218
  Serious: Yes (Death, Hospitalization)
  Sender: FDA-Public Use
  Company Number: US-ROCHE-409000

PATIENT
  Age: 58 Year
  Sex: Female
  Weight: 80.3 kg

DRUGS (6)
  1. XELODA [Suspect]
     Route: 048
     Dates: start: 20050101, end: 20050223
  2. COUMADIN [Interacting]
     Route: 048
     Dates: start: 20040203
  3. COUMADIN [Interacting]
     Dosage: REDUCED DOSE
     Route: 048
     Dates: end: 20050223
  4. PROZAC [Concomitant]
     Indication: DEPRESSION
     Route: 048
     Dates: start: 19990924, end: 20050224
  5. XANAX [Concomitant]
     Indication: ANXIETY
     Route: 048
     Dates: start: 19990904, end: 20050224
  6. OXYCODONE HCL [Concomitant]
     Indication: PAIN
     Route: 048
     Dates: start: 20050107, end: 20050224

REACTIONS (14)
  - CEREBRAL HAEMORRHAGE [None]
  - CONTUSION [None]
  - DRUG INTERACTION [None]
  - EPISTAXIS [None]
  - HAEMORRHAGE [None]
  - HYPERSENSITIVITY [None]
  - LIVER DISORDER [None]
  - MALIGNANT NERVOUS SYSTEM NEOPLASM [None]
  - MOUTH HAEMORRHAGE [None]
  - MOUTH INJURY [None]
  - ORAL MUCOSAL DISORDER [None]
  - PALMAR-PLANTAR ERYTHRODYSAESTHESIA SYNDROME [None]
  - PROTHROMBIN TIME PROLONGED [None]
  - SUBDURAL HAEMATOMA [None]
